FAERS Safety Report 8902709 (Version 5)
Quarter: 2013Q4

REPORT INFORMATION
  Report Type: Spontaneous
  Country: US (occurrence: US)
  Receive Date: 20121112
  Receipt Date: 20131226
  Transmission Date: 20140711
  Serious: Yes (Death, Hospitalization, Disabling, Other)
  Sender: FDA-Public Use
  Company Number: US-009507513-1211USA004408

PATIENT
  Sex: Female
  Weight: 90.7 kg

DRUGS (22)
  1. FOSAMAX [Suspect]
     Indication: BONE DENSITY DECREASED
     Dosage: 70 MG, QW
     Route: 048
     Dates: start: 200508, end: 200707
  2. OMEGA-3 MARINE TRIGLYCERIDES [Concomitant]
     Dosage: 1000 MG, QD
     Dates: start: 1990, end: 201103
  3. VITAMINS (UNSPECIFIED) [Concomitant]
     Dosage: 1-2 DAILY
     Route: 048
     Dates: start: 1990, end: 201103
  4. CORTICOSTEROIDS (UNSPECIFIED) [Concomitant]
     Dosage: UNK
     Dates: start: 2004, end: 2010
  5. OMEPRAZOLE [Concomitant]
     Indication: GASTROOESOPHAGEAL REFLUX DISEASE
     Dosage: 20 MG, QD
     Dates: start: 2004, end: 2011
  6. LASIX (FUROSEMIDE) [Concomitant]
     Indication: FLUID RETENTION
     Dosage: 40-80 MG DAILY
     Dates: start: 2003, end: 2010
  7. SIMVASTATIN [Concomitant]
     Indication: BLOOD CHOLESTEROL INCREASED
     Dosage: UNK
     Dates: start: 2004, end: 2011
  8. METFORMIN [Concomitant]
     Indication: TYPE 2 DIABETES MELLITUS
     Dosage: 500 MG, BID
     Dates: start: 2003, end: 2011
  9. HUMALOG [Concomitant]
     Indication: TYPE 2 DIABETES MELLITUS
     Dosage: SLIDING SCALE
     Dates: start: 2004, end: 2008
  10. NEURONTIN [Concomitant]
     Indication: DIABETIC NEUROPATHY
     Dosage: 800 MG, 5 TIMES A DAY
     Dates: start: 2004
  11. COMBIVENT [Concomitant]
     Indication: CHRONIC OBSTRUCTIVE PULMONARY DISEASE
     Dosage: 2 PUFFS, QID
     Route: 055
     Dates: start: 2003, end: 2011
  12. ADVAIR [Concomitant]
     Indication: CHRONIC OBSTRUCTIVE PULMONARY DISEASE
     Dosage: 250/50 1 PUFF BID
     Route: 055
     Dates: start: 200307, end: 2010
  13. XALATAN [Concomitant]
     Indication: GLAUCOMA
     Dosage: 1 DROP EACH EYE QD, 0.005%
     Route: 047
     Dates: start: 2003, end: 2011
  14. SINGULAIR [Concomitant]
     Indication: HYPERSENSITIVITY
     Dosage: 10 MG, QD
     Route: 048
     Dates: start: 20051015, end: 2011
  15. SINGULAIR [Concomitant]
     Indication: CHRONIC OBSTRUCTIVE PULMONARY DISEASE
  16. PREDNISONE [Concomitant]
     Indication: INFLAMMATION
     Dosage: UNK
     Dates: start: 2004, end: 2010
  17. COUMADIN [Concomitant]
     Indication: ATRIAL FIBRILLATION
     Dosage: 5-7.5 MG
     Dates: start: 2004, end: 2011
  18. WARFARIN [Concomitant]
     Indication: ATRIAL FIBRILLATION
  19. OXYGEN [Concomitant]
     Indication: CHRONIC OBSTRUCTIVE PULMONARY DISEASE
     Dosage: 2-4 LITERS PRN
     Route: 045
  20. PENICILLIN VK [Concomitant]
     Indication: RHEUMATIC HEART DISEASE
     Dosage: 250 MG, BID
  21. PROCRIT [Concomitant]
     Indication: IRON DEFICIENCY ANAEMIA
     Dosage: 40,000 UNITS QW
     Route: 058
     Dates: start: 20080311
  22. FEOSOL [Concomitant]
     Indication: IRON DEFICIENCY ANAEMIA
     Dosage: 325 MG, BID
     Route: 048
     Dates: start: 20080320

REACTIONS (86)
  - Femur fracture [Fatal]
  - Intramedullary rod insertion [Not Recovered/Not Resolved]
  - Acute respiratory failure [Unknown]
  - Adenoidectomy [Unknown]
  - Renal failure acute [Recovered/Resolved]
  - Renal failure chronic [Not Recovered/Not Resolved]
  - Tonsillectomy [Unknown]
  - Pneumonia [Recovering/Resolving]
  - Toe amputation [Unknown]
  - Cerebrovascular accident [Unknown]
  - Angioplasty [Unknown]
  - Aortic valve replacement [Unknown]
  - Myocardial infarction [Unknown]
  - Respiratory distress [Recovering/Resolving]
  - Coagulopathy [Unknown]
  - Chronic obstructive pulmonary disease [Recovering/Resolving]
  - Chronic obstructive pulmonary disease [Recovering/Resolving]
  - Osteomyelitis [Unknown]
  - Pneumonia [Unknown]
  - Uterine dilation and curettage [Unknown]
  - Lower gastrointestinal haemorrhage [Unknown]
  - Cardiac failure congestive [Recovering/Resolving]
  - Cellulitis [Recovering/Resolving]
  - Diabetic foot [Not Recovered/Not Resolved]
  - Upper gastrointestinal haemorrhage [Unknown]
  - Anaemia [Unknown]
  - Hypercalcaemia [Unknown]
  - Dyspnoea [Unknown]
  - Lobar pneumonia [Unknown]
  - Pain [Not Recovered/Not Resolved]
  - Chronic obstructive pulmonary disease [Recovering/Resolving]
  - Rheumatoid arthritis [Unknown]
  - Fall [Unknown]
  - Cardiac failure congestive [Not Recovered/Not Resolved]
  - Haemoptysis [Unknown]
  - Bronchitis [Recovering/Resolving]
  - Aortic disorder [Unknown]
  - Exostosis [Unknown]
  - Cardiomegaly [Unknown]
  - Bronchospasm [Unknown]
  - Chest pain [Unknown]
  - Hyperlipidaemia [Unknown]
  - Diverticulum [Unknown]
  - Migraine [Unknown]
  - Osteoarthritis [Unknown]
  - Weight increased [Unknown]
  - Pedal pulse decreased [Unknown]
  - Osteoarthritis [Unknown]
  - Large intestinal polypectomy [Unknown]
  - Blood bicarbonate increased [Unknown]
  - Blood pressure orthostatic [Unknown]
  - Femoral artery occlusion [Unknown]
  - Nail infection [Not Recovered/Not Resolved]
  - Colon adenoma [Unknown]
  - Lung disorder [Unknown]
  - Haemorrhoids [Unknown]
  - Polypectomy [Unknown]
  - Post procedural haemorrhage [Unknown]
  - Duodenal polyp [Unknown]
  - Anaemia [Unknown]
  - Hypoglycaemia [Unknown]
  - Sleep apnoea syndrome [Unknown]
  - Interstitial lung disease [Unknown]
  - Pleural effusion [Unknown]
  - Adrenal disorder [Unknown]
  - Bundle branch block right [Unknown]
  - Bundle branch block left [Unknown]
  - Sinus bradycardia [Not Recovered/Not Resolved]
  - Pulmonary hypertension [Unknown]
  - Culture positive [Unknown]
  - Oesophageal ulcer [Unknown]
  - Dyspnoea [Unknown]
  - Chest pain [Unknown]
  - Glossodynia [Not Recovered/Not Resolved]
  - Lung disorder [Unknown]
  - Bronchitis chronic [Not Recovered/Not Resolved]
  - Depression [Unknown]
  - Chronic obstructive pulmonary disease [Unknown]
  - Emphysema [Unknown]
  - Bronchitis chronic [Unknown]
  - Cor pulmonale [Unknown]
  - Pulmonary hypertension [Unknown]
  - Confusional state [Unknown]
  - Tongue ulceration [Unknown]
  - Oesophagitis [Unknown]
  - Oedema peripheral [Not Recovered/Not Resolved]
